FAERS Safety Report 6160028-0 (Version None)
Quarter: 2009Q2

REPORT INFORMATION
  Report Type: 
  Country: None (occurrence: None)
  Receive Date: 20090420
  Receipt Date: 20090413
  Transmission Date: 20091009
  Serious: Yes (Other)
  Sender: FDA-Public Use
  Company Number: US-BAYER-200915750NA

PATIENT
  Age: 70 Year
  Sex: Female
  Weight: 86 kg

DRUGS (5)
  1. AVELOX [Suspect]
     Indication: LUNG INFECTION
     Dates: start: 20090310
  2. PREDNISONE [Concomitant]
     Dates: start: 20090301
  3. PREMARIN [Concomitant]
  4. PAXIL [Concomitant]
  5. TRAZODONE HCL [Concomitant]

REACTIONS (12)
  - ASTHENIA [None]
  - DEHYDRATION [None]
  - DIARRHOEA [None]
  - HEADACHE [None]
  - HYPERSENSITIVITY [None]
  - MALAISE [None]
  - OEDEMA MOUTH [None]
  - ORAL PAIN [None]
  - PHARYNGEAL OEDEMA [None]
  - SWOLLEN TONGUE [None]
  - TENDON PAIN [None]
  - VOMITING [None]
